FAERS Safety Report 16935471 (Version 1)
Quarter: 2019Q4

REPORT INFORMATION
  Report Type: Spontaneous
  Country: US (occurrence: US)
  Receive Date: 20190827
  Receipt Date: 20190827
  Transmission Date: 20200122
  Serious: No
  Sender: FDA-Public Use
  Company Number: None

PATIENT
  Age: 20 Year
  Sex: Female

DRUGS (1)
  1. MAVYRET [Suspect]
     Active Substance: GLECAPREVIR\PIBRENTASVIR
     Dosage: ?          OTHER DOSE:300/120MG;?
     Route: 048
     Dates: start: 20190723

REACTIONS (3)
  - Diarrhoea [None]
  - Weight increased [None]
  - Increased appetite [None]

NARRATIVE: CASE EVENT DATE: 20190827
